FAERS Safety Report 20710044 (Version 1)
Quarter: 2022Q2

REPORT INFORMATION
  Report Type: Spontaneous
  Country: US (occurrence: US)
  Receive Date: 20220414
  Receipt Date: 20220414
  Transmission Date: 20220721
  Serious: No
  Sender: FDA-Public Use
  Company Number: US-BAYER-2022A053363

PATIENT
  Age: 70 Year
  Sex: Female

DRUGS (2)
  1. MIRALAX [Suspect]
     Active Substance: POLYETHYLENE GLYCOL 3350
     Dosage: HALF OF THE WHITE CAPAP DOSE
     Route: 048
     Dates: start: 202110, end: 20220414
  2. MIRALAX [Suspect]
     Active Substance: POLYETHYLENE GLYCOL 3350
     Dosage: UNK

REACTIONS (3)
  - Extra dose administered [Unknown]
  - Product use issue [None]
  - Incorrect dose administered [None]

NARRATIVE: CASE EVENT DATE: 20220101
